FAERS Safety Report 10498233 (Version 2)
Quarter: 2014Q4

REPORT INFORMATION
  Report Type: Spontaneous
  Country: US (occurrence: None)
  Receive Date: 20141003
  Receipt Date: 20141107
  Transmission Date: 20150528
  Serious: Yes (Hospitalization)
  Sender: FDA-Public Use
  Company Number: 2014CT000152

PATIENT
  Age: 59 Year
  Sex: Female
  Weight: 49.9 kg

DRUGS (9)
  1. DIGOXIN. [Suspect]
     Active Substance: DIGOXIN
  2. LOMOTIL [Concomitant]
     Active Substance: ATROPINE SULFATE\DIPHENOXYLATE HYDROCHLORIDE
  3. TEGRETOL [Concomitant]
     Active Substance: CARBAMAZEPINE
  4. ALENDRONATE [Concomitant]
     Active Substance: ALENDRONATE SODIUM
  5. KORLYM [Suspect]
     Active Substance: MIFEPRISTONE
     Indication: CUSHING^S SYNDROME
     Route: 048
     Dates: start: 20140830
  6. LAMICTAL [Concomitant]
     Active Substance: LAMOTRIGINE
  7. LORAZEPAM. [Concomitant]
     Active Substance: LORAZEPAM
  8. VIMPAT [Concomitant]
     Active Substance: LACOSAMIDE
  9. BATH GEL [Suspect]
     Active Substance: UNSPECIFIED INGREDIENT

REACTIONS (11)
  - Pyrexia [None]
  - Unresponsive to stimuli [None]
  - Staring [None]
  - Dysphagia [None]
  - Cardioactive drug level increased [None]
  - Eyelid rash [None]
  - Excessive eye blinking [None]
  - Drug interaction [None]
  - Erythema [None]
  - Rash generalised [None]
  - Rash [None]

NARRATIVE: CASE EVENT DATE: 201409
